FAERS Safety Report 11094752 (Version 1)
Quarter: 2015Q2

REPORT INFORMATION
  Report Type: Spontaneous
  Country: US (occurrence: US)
  Receive Date: 20150506
  Receipt Date: 20150506
  Transmission Date: 20150821
  Serious: No
  Sender: FDA-Public Use
  Company Number: US-EISAI MEDICAL RESEARCH-EC-2015-006333

PATIENT
  Age: 63 Year
  Sex: Female
  Weight: 80.9 kg

DRUGS (7)
  1. LEVOTHYROXINE [Concomitant]
     Active Substance: LEVOTHYROXINE
  2. BABY ASPIRIN [Concomitant]
     Active Substance: ASPIRIN
  3. BELVIQ [Suspect]
     Active Substance: LORCASERIN HYDROCHLORIDE
     Indication: WEIGHT DECREASED
     Route: 048
     Dates: start: 201504, end: 201504
  4. VITAMIN D [Concomitant]
     Active Substance: CHOLECALCIFEROL
  5. DEXILANT [Concomitant]
     Active Substance: DEXLANSOPRAZOLE
     Indication: GASTROOESOPHAGEAL REFLUX DISEASE
  6. PROBIOTICS [Concomitant]
     Active Substance: PROBIOTICS NOS
  7. CALCIUM [Concomitant]
     Active Substance: CALCIUM

REACTIONS (1)
  - Drug ineffective [Not Recovered/Not Resolved]

NARRATIVE: CASE EVENT DATE: 201504
